FAERS Safety Report 7506156-6 (Version None)
Quarter: 2011Q2

REPORT INFORMATION
  Report Type: 
  Country: None (occurrence: None)
  Receive Date: 20110526
  Receipt Date: 20110519
  Transmission Date: 20111010
  Serious: Yes (Hospitalization)
  Sender: FDA-Public Use
  Company Number: US-MYLANLABS-2011S1010339

PATIENT
  Age: 65 Year
  Sex: Female
  Weight: 55.34 kg

DRUGS (5)
  1. OXYCONTIN [Concomitant]
     Indication: BREAKTHROUGH PAIN
  2. FENTANYL-100 [Suspect]
     Indication: BACK PAIN
     Dosage: 75UG/HR Q2 - 3 DAYS
     Route: 062
     Dates: start: 20110505
  3. FENTANYL-100 [Suspect]
     Route: 062
  4. FENTANYL-100 [Suspect]
     Route: 062
  5. FENTANYL-100 [Suspect]
     Route: 062
     Dates: start: 20040101

REACTIONS (4)
  - SURGERY [None]
  - DRUG DEPENDENCE [None]
  - PNEUMONIA [None]
  - DRUG INEFFECTIVE [None]
